FAERS Safety Report 10487055 (Version 3)
Quarter: 2014Q4

REPORT INFORMATION
  Report Type: Spontaneous
  Country: NL (occurrence: NL)
  Receive Date: 20141001
  Receipt Date: 20141021
  Transmission Date: 20150528
  Serious: Yes (Death)
  Sender: FDA-Public Use
  Company Number: NL-TEVA-511875ISR

PATIENT
  Sex: Female

DRUGS (7)
  1. COPAXONE [Suspect]
     Active Substance: GLATIRAMER ACETATE
     Dosage: 20 MILLIGRAM DAILY;
     Route: 058
     Dates: start: 20091022
  2. NORTRILEN 25 [Concomitant]
  3. LOSARTAN KALIUM 50 MG [Concomitant]
     Dosage: 50 MILLIGRAM DAILY;
  4. LYRICA [Concomitant]
     Active Substance: PREGABALIN
  5. PROMETHAZINE [Concomitant]
     Active Substance: PROMETHAZINE\PROMETHAZINE HYDROCHLORIDE
     Dosage: 50 MILLIGRAM DAILY;
  6. NORTRILEN 25 [Concomitant]
     Dosage: 25 MILLIGRAM DAILY;
  7. TEMAZEPAM. [Concomitant]
     Active Substance: TEMAZEPAM
     Dosage: 20 MILLIGRAM DAILY;

REACTIONS (1)
  - Completed suicide [Fatal]
